FAERS Safety Report 17468828 (Version 2)
Quarter: 2020Q2

REPORT INFORMATION
  Report Type: Spontaneous
  Country: US (occurrence: US)
  Receive Date: 20200227
  Receipt Date: 20200619
  Transmission Date: 20200713
  Serious: Yes (Hospitalization, Other)
  Sender: FDA-Public Use
  Company Number: US-AEGERION PHARMACEUTICAL, INC-AEGR004242

PATIENT
  Age: 12 Year
  Sex: Female
  Weight: 67.6 kg

DRUGS (5)
  1. MYALEPT [Suspect]
     Active Substance: METRELEPTIN
     Indication: CONGENITAL GENERALISED LIPODYSTROPHY
     Dosage: 1 ML, BID
     Route: 058
     Dates: start: 20160817
  2. METFORMIN HCL [Concomitant]
     Active Substance: METFORMIN HYDROCHLORIDE
     Indication: PRODUCT USED FOR UNKNOWN INDICATION
     Dosage: 500 MG (TABLET), UNK
  3. CLARITIN [Concomitant]
     Active Substance: LORATADINE
     Indication: PRODUCT USED FOR UNKNOWN INDICATION
     Dosage: 10 MG, UNK
  4. MULTIVITAMINS                      /07504101/ [Concomitant]
     Active Substance: VITAMINS
     Indication: PRODUCT USED FOR UNKNOWN INDICATION
  5. VITAMIN D3 [Concomitant]
     Active Substance: CHOLECALCIFEROL
     Indication: PRODUCT USED FOR UNKNOWN INDICATION
     Dosage: 1000 UNITS (CAPSULE), UNK

REACTIONS (3)
  - Pancreatitis [Recovered/Resolved]
  - Abdominal pain [Recovered/Resolved]
  - Ovarian germ cell teratoma [Not Recovered/Not Resolved]

NARRATIVE: CASE EVENT DATE: 20190420
